FAERS Safety Report 6592717-8 (Version None)
Quarter: 2010Q1

REPORT INFORMATION
  Report Type: 
  Country: None (occurrence: None)
  Receive Date: 20100212
  Receipt Date: 20100201
  Transmission Date: 20100710
  Serious: Yes (Other)
  Sender: FDA-Public Use
  Company Number: 1000011484

PATIENT
  Age: 36 Year
  Sex: Male

DRUGS (2)
  1. ESCITALOPRAM OXALATE [Suspect]
     Indication: DEPRESSION
     Dosage: 10 MG, ORAL; 20 MG, ORAL
     Route: 048
     Dates: start: 20091116
  2. PROPRANOLOL [Suspect]
     Dosage: 80 MG,ORAL
     Route: 048
     Dates: start: 20091102, end: 20091130

REACTIONS (3)
  - HALLUCINATION, AUDITORY [None]
  - MAJOR DEPRESSION [None]
  - SUICIDAL IDEATION [None]
